FAERS Safety Report 9375153 (Version 1)
Quarter: 2013Q2

REPORT INFORMATION
  Report Type: Spontaneous
  Country: US (occurrence: US)
  Receive Date: 20130628
  Receipt Date: 20130628
  Transmission Date: 20140414
  Serious: No
  Sender: FDA-Public Use
  Company Number: US-009507513-1306USA007883

PATIENT
  Sex: Female

DRUGS (3)
  1. VICTRELIS [Suspect]
     Indication: HEPATITIS C
     Dosage: UNK
     Route: 048
     Dates: start: 20130518
  2. REBETOL [Suspect]
     Dosage: UNK
     Route: 048
     Dates: start: 20130419
  3. PEG-INTRON [Suspect]
     Dosage: UNK, REDIPEN
     Dates: start: 20130419

REACTIONS (2)
  - Malaise [Unknown]
  - Vomiting [Unknown]
